FAERS Safety Report 11593126 (Version 1)
Quarter: 2015Q4

REPORT INFORMATION
  Report Type: Spontaneous
  Country: GB (occurrence: GB)
  Receive Date: 20151005
  Receipt Date: 20151005
  Transmission Date: 20160304
  Serious: Yes (Disabling, Other)
  Sender: FDA-Public Use
  Company Number: GB-TEVA-596535ACC

PATIENT
  Age: 56 Year
  Sex: Male
  Weight: 100 kg

DRUGS (7)
  1. AZOPT [Concomitant]
     Active Substance: BRINZOLAMIDE
     Dosage: 2 GTT DAILY;
     Dates: start: 20150220
  2. BIMATOPROST. [Concomitant]
     Active Substance: BIMATOPROST
     Dosage: 1 GTT DAILY;
     Dates: start: 20150619
  3. MEBEVERINE HYDROCHLORIDE [Concomitant]
     Active Substance: MEBEVERINE HYDROCHLORIDE
     Dosage: 3 DOSAGE FORMS DAILY; 3 DOSAGE FORMS, 30 MINUTES BEFORE FOOD.
     Dates: start: 20150220, end: 20150916
  4. SIMVASTATIN. [Suspect]
     Active Substance: SIMVASTATIN
     Dates: start: 201406, end: 201503
  5. SILDENAFIL. [Concomitant]
     Active Substance: SILDENAFIL
     Dosage: USE AS DIRECTED.
     Dates: start: 20140819
  6. ATORVASTATIN [Concomitant]
     Active Substance: ATORVASTATIN
     Dosage: 1 DOSAGE FORMS DAILY;
     Dates: start: 20150916
  7. LUMIGAN [Concomitant]
     Active Substance: BIMATOPROST
     Dosage: 1 GTT DAILY; 1 GTT, IN THE EVENING.
     Dates: start: 20150220, end: 20150619

REACTIONS (2)
  - Tendon rupture [Recovered/Resolved]
  - Myalgia [Unknown]

NARRATIVE: CASE EVENT DATE: 201503
